FAERS Safety Report 20904870 (Version 1)
Quarter: 2022Q2

REPORT INFORMATION
  Report Type: Spontaneous
  Country: US (occurrence: None)
  Receive Date: 20220601
  Receipt Date: 20220601
  Transmission Date: 20220721
  Serious: Yes (Hospitalization)
  Sender: FDA-Public Use
  Company Number: None

PATIENT
  Age: 22 Year
  Sex: Male
  Weight: 54 kg

DRUGS (3)
  1. PAXLOVID [Suspect]
     Active Substance: NIRMATRELVIR\RITONAVIR
     Indication: COVID-19
     Dates: start: 20220522, end: 20220527
  2. Buspar 15 mg BID [Concomitant]
  3. Zyrtec 10 mg BID [Concomitant]

REACTIONS (4)
  - Decreased appetite [None]
  - Dehydration [None]
  - Confusional state [None]
  - Eye movement disorder [None]

NARRATIVE: CASE EVENT DATE: 20220526
